FAERS Safety Report 7890618-6 (Version None)
Quarter: 2011Q4

REPORT INFORMATION
  Report Type: 
  Country: None (occurrence: None)
  Receive Date: 20111103
  Receipt Date: 20110722
  Transmission Date: 20120403
  Serious: No
  Sender: FDA-Public Use
  Company Number: US-AMGEN-USASP2011037414

PATIENT
  Age: 52 Year
  Sex: Female
  Weight: 75.7 kg

DRUGS (9)
  1. CELEBREX [Concomitant]
     Dosage: 50 MG, UNK
  2. CENTRUM [Concomitant]
     Dosage: 1000 IU, UNK
  3. ENBREL [Suspect]
     Indication: PRODUCT USED FOR UNKNOWN INDICATION
     Dosage: 50 MG, QWK
     Route: 058
  4. SYNTHROID [Concomitant]
     Dosage: 150 MUG, UNK
  5. VITAMIN D [Concomitant]
     Dosage: UNK
  6. PERCOCET [Concomitant]
     Dosage: UNK
  7. ZOLOFT [Concomitant]
     Dosage: 50 MG, UNK
  8. ASPIRIN [Concomitant]
     Dosage: 81 MG, UNK
  9. VITAMIN B-12 [Concomitant]
     Dosage: 500 MUG, UNK

REACTIONS (6)
  - INJECTION SITE PAIN [None]
  - INJECTION SITE ERYTHEMA [None]
  - INFECTION [None]
  - INJECTION SITE PRURITUS [None]
  - ARTHROPOD BITE [None]
  - DRUG INEFFECTIVE [None]
